FAERS Safety Report 8164124 (Version 3)
Quarter: 2012Q4

REPORT INFORMATION
  Report Type: 
  Country: US (occurrence: US)
  Receive Date: 20110930
  Receipt Date: 20121220
  Transmission Date: 20130627
  Serious: No
  Sender: FDA-Public Use
  Company Number: US-ASTRAZENECA-2011SE36800

PATIENT
  Age: 80 Year
  Sex: Female

DRUGS (3)
  1. ARIMIDEX [Suspect]
     Route: 048
  2. ARIMIDEX [Suspect]
     Route: 048
     Dates: start: 20120712
  3. DIURETIC [Concomitant]

REACTIONS (14)
  - Breast pain [Unknown]
  - Paraesthesia [Unknown]
  - Oedema peripheral [Unknown]
  - Oedema peripheral [Unknown]
  - Lacrimation increased [Unknown]
  - Vision blurred [Unknown]
  - Visual impairment [Unknown]
  - Blood pressure decreased [Unknown]
  - Cold sweat [Unknown]
  - Headache [Unknown]
  - Hot flush [Unknown]
  - Decreased appetite [Unknown]
  - Rash pruritic [Unknown]
  - Intentional drug misuse [Unknown]
